FAERS Safety Report 9350852 (Version 1)
Quarter: 2013Q2

REPORT INFORMATION
  Report Type: Spontaneous
  Country: US (occurrence: US)
  Receive Date: 20130617
  Receipt Date: 20130617
  Transmission Date: 20140414
  Serious: Yes (Hospitalization)
  Sender: FDA-Public Use
  Company Number: US-ROCHE-1236329

PATIENT
  Sex: 0

DRUGS (1)
  1. VISMODEGIB [Suspect]
     Indication: PRODUCT USED FOR UNKNOWN INDICATION
     Route: 065

REACTIONS (3)
  - Hyponatraemia [Unknown]
  - Amenorrhoea [Unknown]
  - Ileus [Unknown]
